FAERS Safety Report 6618663-9 (Version None)
Quarter: 2010Q1

REPORT INFORMATION
  Report Type: 
  Country: None (occurrence: None)
  Receive Date: 20100305
  Receipt Date: 20100305
  Transmission Date: 20100710
  Serious: Yes (Other)
  Sender: FDA-Public Use
  Company Number: None

PATIENT
  Age: 73 Year
  Sex: Female
  Weight: 73.4827 kg

DRUGS (2)
  1. TRILIPIX [Suspect]
     Indication: LIPIDS
     Dosage: 1 CAP. 1X DAILY P.O.
     Route: 048
     Dates: start: 20100121, end: 20100127
  2. TRILIPIX [Suspect]
     Indication: LIPIDS
     Dosage: 1 CAP. 1X DAILY P.O.
     Route: 048
     Dates: start: 20100202

REACTIONS (5)
  - CONDITION AGGRAVATED [None]
  - DIARRHOEA [None]
  - FLATULENCE [None]
  - GASTROOESOPHAGEAL REFLUX DISEASE [None]
  - PAINFUL DEFAECATION [None]
